FAERS Safety Report 15600948 (Version 1)
Quarter: 2018Q4

REPORT INFORMATION
  Report Type: Spontaneous
  Country: US (occurrence: US)
  Receive Date: 20181108
  Receipt Date: 20181108
  Transmission Date: 20190205
  Serious: Yes (Other)
  Sender: FDA-Public Use
  Company Number: None

PATIENT
  Age: 46 Year
  Sex: Female
  Weight: 90 kg

DRUGS (1)
  1. AIMOVIG [Suspect]
     Active Substance: ERENUMAB-AOOE
     Indication: MIGRAINE

REACTIONS (5)
  - Human rhinovirus test positive [None]
  - Enterovirus test positive [None]
  - Rhinovirus infection [None]
  - Alopecia [None]
  - Pneumonia [None]

NARRATIVE: CASE EVENT DATE: 20181108
